FAERS Safety Report 10724298 (Version 6)
Quarter: 2015Q2

REPORT INFORMATION
  Report Type: Spontaneous
  Country: BR (occurrence: BR)
  Receive Date: 20150120
  Receipt Date: 20150424
  Transmission Date: 20150821
  Serious: Yes (Other)
  Sender: FDA-Public Use
  Company Number: PHHY2014BR169983

PATIENT
  Age: 55 Year
  Sex: Female
  Weight: 77 kg

DRUGS (2)
  1. TOPIRAMATE. [Suspect]
     Active Substance: TOPIRAMATE
     Indication: EPILEPSY
     Dosage: 2 DF, QD 1 WEEK
     Route: 048
  2. TRILEPTAL [Suspect]
     Active Substance: OXCARBAZEPINE
     Indication: EPILEPSY
     Dosage: 1 DF, Q8H
     Route: 048
     Dates: start: 2008

REACTIONS (22)
  - Uterine leiomyoma [Unknown]
  - Wound [Not Recovered/Not Resolved]
  - Pruritus generalised [Not Recovered/Not Resolved]
  - Gamma-glutamyltransferase increased [Not Recovered/Not Resolved]
  - Gastrointestinal perforation [Recovering/Resolving]
  - Mediastinal mass [Unknown]
  - Face injury [Unknown]
  - Road traffic accident [Unknown]
  - Epilepsy [Not Recovered/Not Resolved]
  - Anal pruritus [Not Recovered/Not Resolved]
  - Fall [Unknown]
  - Nodule [Unknown]
  - Petit mal epilepsy [Unknown]
  - Head injury [Unknown]
  - Mass [Unknown]
  - Peripheral swelling [Not Recovered/Not Resolved]
  - Swelling [Not Recovered/Not Resolved]
  - Weight increased [Not Recovered/Not Resolved]
  - Rib fracture [Recovering/Resolving]
  - Splenic rupture [Recovering/Resolving]
  - Uterine mass [Unknown]
  - Leiomyoma [Unknown]

NARRATIVE: CASE EVENT DATE: 2005
